FAERS Safety Report 16196334 (Version 1)
Quarter: 2019Q2

REPORT INFORMATION
  Report Type: Report from Study
  Country: JP (occurrence: JP)
  Receive Date: 20190415
  Receipt Date: 20190415
  Transmission Date: 20190711
  Serious: Yes (Other)
  Sender: FDA-Public Use
  Company Number: JP-EISAI MEDICAL RESEARCH-EC-2019-054910

PATIENT
  Age: 87 Year
  Sex: Male
  Weight: 54 kg

DRUGS (4)
  1. LIVACT [Concomitant]
     Active Substance: AMINO ACIDS
  2. LENVIMA [Suspect]
     Active Substance: LENVATINIB
     Indication: HEPATOCELLULAR CARCINOMA
     Route: 048
     Dates: start: 20181115, end: 20181219
  3. LENVIMA [Suspect]
     Active Substance: LENVATINIB
     Route: 048
     Dates: start: 20190107
  4. LASIX [Concomitant]
     Active Substance: FUROSEMIDE

REACTIONS (1)
  - Malaise [Recovering/Resolving]

NARRATIVE: CASE EVENT DATE: 20181219
